FAERS Safety Report 11537670 (Version 1)
Quarter: 2015Q3

REPORT INFORMATION
  Report Type: Spontaneous
  Country: US (occurrence: US)
  Receive Date: 20150922
  Receipt Date: 20150922
  Transmission Date: 20151125
  Serious: Yes (Hospitalization, Other)
  Sender: FDA-Public Use
  Company Number: US-PFIZER INC-2015311146

PATIENT
  Age: 53 Year
  Sex: Female

DRUGS (10)
  1. TEGRETOL [Concomitant]
     Active Substance: CARBAMAZEPINE
     Indication: EPILEPSY
     Dosage: UNK
  2. ZOLOFT [Concomitant]
     Active Substance: SERTRALINE HYDROCHLORIDE
     Indication: ANXIETY
  3. GABITRIL [Concomitant]
     Active Substance: TIAGABINE HYDROCHLORIDE
     Indication: EPILEPSY
     Dosage: UNK
     Dates: start: 2003
  4. DEPO-PROVERA [Suspect]
     Active Substance: MEDROXYPROGESTERONE ACETATE
     Indication: EPILEPSY
     Dosage: 250 MG/ML, EVERY 3 MONTHS
     Dates: start: 2009
  5. FELBATOL [Suspect]
     Active Substance: FELBAMATE
     Indication: EPILEPSY
     Dosage: 3200 MG, DAILY (1200 MG AT 7:00AM, 800 MG AT 2:00 PM AND 1200 MG AT 10:00 PM)
     Dates: start: 2005, end: 201410
  6. DILANTIN [Concomitant]
     Active Substance: PHENYTOIN
     Indication: EPILEPSY
     Dosage: UNK
  7. IBUPROFEN. [Concomitant]
     Active Substance: IBUPROFEN
     Dosage: UNK
  8. CARBATROL [Concomitant]
     Active Substance: CARBAMAZEPINE
     Indication: EPILEPSY
     Dosage: UNK
  9. DOXEPIN [Concomitant]
     Active Substance: DOXEPIN
     Indication: SLEEP DISORDER
     Dosage: UNK
  10. ZOLOFT [Concomitant]
     Active Substance: SERTRALINE HYDROCHLORIDE
     Indication: DEPRESSION
     Dosage: UNK
     Dates: start: 2003

REACTIONS (13)
  - Chest pain [Unknown]
  - Hypertension [Not Recovered/Not Resolved]
  - Seizure [Recovered/Resolved]
  - Blood cholesterol increased [Not Recovered/Not Resolved]
  - Gastrooesophageal reflux disease [Unknown]
  - Road traffic accident [Recovered/Resolved]
  - Blood potassium decreased [Unknown]
  - Osteoporosis [Not Recovered/Not Resolved]
  - Tic [Not Recovered/Not Resolved]
  - Foot fracture [Not Recovered/Not Resolved]
  - Blood magnesium decreased [Unknown]
  - Urinary incontinence [Unknown]
  - Product use issue [Unknown]

NARRATIVE: CASE EVENT DATE: 2005
